FAERS Safety Report 4487909-8 (Version None)
Quarter: 2004Q4

REPORT INFORMATION
  Report Type: 
  Country: None (occurrence: None)
  Receive Date: 20041025
  Receipt Date: 20041013
  Transmission Date: 20050328
  Serious: Yes (Other)
  Sender: FDA-Public Use
  Company Number: US-2004-033419

PATIENT
  Age: 20 Year
  Sex: Female
  Weight: 55.8 kg

DRUGS (3)
  1. YASMIN [Suspect]
     Indication: ACNE
     Dosage: 1 TAB (S), 1X/DAY, ORAL
     Route: 048
     Dates: start: 20040911, end: 20041006
  2. LUVOX [Concomitant]
  3. MECLOCYCLINE (MECLOCYCLINE) [Concomitant]

REACTIONS (6)
  - CYANOSIS [None]
  - DYSGEUSIA [None]
  - DYSKINESIA [None]
  - DYSPHAGIA [None]
  - DYSPNOEA [None]
  - THROAT IRRITATION [None]
